FAERS Safety Report 5497082-5 (Version None)
Quarter: 2007Q4

REPORT INFORMATION
  Report Type: 
  Country: None (occurrence: None)
  Receive Date: 20071023
  Receipt Date: 20071009
  Transmission Date: 20080405
  Serious: Yes (Hospitalization)
  Sender: FDA-Public Use
  Company Number: 162534ISR

PATIENT
  Sex: Female

DRUGS (2)
  1. GABAPENTIN [Suspect]
  2. ATORVASTATIN CALCIUM [Suspect]
     Dosage: 80 MG (80 MG, 1 IN 1 D) ORAL
     Route: 048

REACTIONS (1)
  - HEPATIC FAILURE [None]
